FAERS Safety Report 7030237-7 (Version None)
Quarter: 2010Q4

REPORT INFORMATION
  Report Type: 
  Country: None (occurrence: None)
  Receive Date: 20101005
  Receipt Date: 20100922
  Transmission Date: 20110411
  Serious: Yes (Other)
  Sender: FDA-Public Use
  Company Number: 20109318

PATIENT
  Sex: Female

DRUGS (2)
  1. LIORESAL [Suspect]
     Indication: MUSCLE SPASTICITY
     Dosage: DAILY, INTRATHECAL
     Route: 037
  2. MORPHINE [Concomitant]

REACTIONS (10)
  - ABDOMINAL DISTENSION [None]
  - BLADDER DISORDER [None]
  - GAIT DISTURBANCE [None]
  - HYPOAESTHESIA [None]
  - INFUSION SITE MASS [None]
  - INTERVERTEBRAL DISC PROTRUSION [None]
  - MUSCULAR WEAKNESS [None]
  - PAIN [None]
  - PAIN IN EXTREMITY [None]
  - SENSATION OF PRESSURE [None]
